FAERS Safety Report 9254582 (Version 1)
Quarter: 2013Q1

REPORT INFORMATION
  Report Type: Spontaneous
  Country: US (occurrence: None)
  Receive Date: 20121203
  Receipt Date: 20121203
  Transmission Date: 20140127
  Serious: Yes (Hospitalization, Other)
  Sender: FDA-Public Use
  Company Number: 201SP017149

PATIENT
  Age: 35 Year
  Sex: Female
  Weight: 88.4 kg

DRUGS (1)
  1. NUVARING (ETONOGESTREL (+) ETHINYL ESTRADIOL) VAGINAL RING [Suspect]
     Indication: CONTRACEPTION
     Route: 067
     Dates: start: 200901, end: 20100415

REACTIONS (5)
  - Deep vein thrombosis [None]
  - Thrombophlebitis [None]
  - Muscle spasms [None]
  - Rash papular [None]
  - Road traffic accident [None]
